FAERS Safety Report 9882863 (Version 2)
Quarter: 2014Q1

REPORT INFORMATION
  Report Type: Spontaneous
  Country: US (occurrence: US)
  Receive Date: 20140207
  Receipt Date: 20140207
  Transmission Date: 20141002
  Serious: Yes (Hospitalization)
  Sender: FDA-Public Use
  Company Number: US-ACORDA-ACO_38455_2013

PATIENT
  Age: 50 Year
  Sex: Male

DRUGS (2)
  1. AMPYRA [Suspect]
     Indication: PRODUCT USED FOR UNKNOWN INDICATION
     Dosage: 10MG,Q12H
     Route: 048
     Dates: start: 201307
  2. TYSABRI [Concomitant]
     Indication: MULTIPLE SCLEROSIS
     Dosage: UNK,UNK
     Route: 065

REACTIONS (4)
  - Nausea [Unknown]
  - Gait disturbance [Unknown]
  - Pain in extremity [Unknown]
  - Back pain [Unknown]
